FAERS Safety Report 9480257 (Version 1)
Quarter: 2013Q3

REPORT INFORMATION
  Report Type: Spontaneous
  Country: US (occurrence: US)
  Receive Date: 20130828
  Receipt Date: 20130828
  Transmission Date: 20140515
  Serious: Yes (Other)
  Sender: FDA-Public Use
  Company Number: US-AMGEN-KDL093552

PATIENT
  Age: 84 Year
  Sex: Female

DRUGS (1)
  1. ENBREL [Suspect]
     Indication: PSORIASIS
     Dosage: 50 MG, QWK
     Route: 058
     Dates: start: 20040321

REACTIONS (5)
  - Squamous cell carcinoma [Unknown]
  - Haematochezia [Unknown]
  - Psoriasis [Unknown]
  - Condition aggravated [Unknown]
  - Cystitis [Unknown]
